FAERS Safety Report 19717825 (Version 1)
Quarter: 2021Q3

REPORT INFORMATION
  Report Type: Spontaneous
  Country: FR (occurrence: FR)
  Receive Date: 20210818
  Receipt Date: 20210818
  Transmission Date: 20211014
  Serious: Yes (Hospitalization)
  Sender: FDA-Public Use
  Company Number: FR-MYLANLABS-2021M1051129

PATIENT
  Age: 23 Year
  Sex: Male
  Weight: 60 kg

DRUGS (1)
  1. VANCOMYCINE MYLAN 1 G POUDRE POUR SOLUTION POUR PERFUSION [Suspect]
     Active Substance: VANCOMYCIN
     Indication: STAPHYLOCOCCAL SEPSIS
     Dosage: 2 GRAM, QD (AUGMENTATION DE LA POSOLOGIE ? 3G/J (LE 29/01/2021) PUIS ? 4G/J (LE 01/02/2021)
     Route: 041
     Dates: start: 20210126, end: 20210202

REACTIONS (4)
  - Eosinophilia [Recovered/Resolved]
  - Erythema [Recovered/Resolved]
  - Lymphangitis [Recovered/Resolved]
  - Rash maculo-papular [Recovered/Resolved]

NARRATIVE: CASE EVENT DATE: 202101
